FAERS Safety Report 7811256-7 (Version None)
Quarter: 2011Q4

REPORT INFORMATION
  Report Type: 
  Country: None (occurrence: None)
  Receive Date: 20111013
  Receipt Date: 20111007
  Transmission Date: 20120403
  Serious: Yes (Disabling)
  Sender: FDA-Public Use
  Company Number: CA-SANOFI-AVENTIS-2011SA066454

PATIENT
  Age: 88 Year
  Sex: Male

DRUGS (5)
  1. ATIVAN [Concomitant]
     Route: 048
  2. SEROQUEL [Concomitant]
     Route: 048
  3. WELLBUTRIN [Concomitant]
     Route: 048
  4. ELIGARD [Suspect]
     Dosage: FREQUENCY: EVERY 3 MONTHS.
     Route: 058
     Dates: end: 20111001
  5. ELIGARD [Suspect]
     Dosage: FREQUENCY: EVERY 3 MONTHS.
     Route: 058
     Dates: start: 20101001

REACTIONS (4)
  - TESTICULAR DISORDER [None]
  - PROSTATIC SPECIFIC ANTIGEN INCREASED [None]
  - DEPRESSION [None]
  - HOT FLUSH [None]
